FAERS Safety Report 7897785 (Version 2)
Quarter: 2015Q4

REPORT INFORMATION
  Report Type: Spontaneous
  Country: US (occurrence: US)
  Receive Date: 20110413
  Receipt Date: 20151215
  Transmission Date: 20160305
  Serious: Yes (Hospitalization)
  Sender: FDA-Public Use
  Company Number: US-BAYER-2011-031557

PATIENT
  Age: 41 Year
  Sex: Female
  Weight: 103.99 kg

DRUGS (12)
  1. FLEXERIL [Concomitant]
     Active Substance: CYCLOBENZAPRINE HYDROCHLORIDE
     Dosage: 10 MG, UNK
  2. SKELAXIN [Concomitant]
     Active Substance: METAXALONE
     Dosage: 800 MG, UNK
  3. METFORMIN [Concomitant]
     Active Substance: METFORMIN HYDROCHLORIDE
     Dosage: 500 MG, UNK
  4. AMLODIPINE [Concomitant]
     Active Substance: AMLODIPINE BESYLATE
  5. METAXALONE. [Concomitant]
     Active Substance: METAXALONE
  6. YASMIN [Suspect]
     Active Substance: DROSPIRENONE\ETHINYL ESTRADIOL
     Dosage: UNK UNK, QD
     Route: 048
     Dates: start: 200810, end: 200904
  7. ATORVASTATIN [Concomitant]
     Active Substance: ATORVASTATIN
  8. YAZ [Suspect]
     Active Substance: DROSPIRENONE\ETHINYL ESTRADIOL
     Dosage: UNK, QD
     Route: 048
     Dates: start: 200810, end: 200904
  9. LISINOPRIL. [Concomitant]
     Active Substance: LISINOPRIL
     Dosage: 20 MG, UNK
  10. HYDROCODONE [Concomitant]
     Active Substance: HYDROCODONE
     Dosage: 5/500MG
  11. METHYLDOPA. [Concomitant]
     Active Substance: METHYLDOPA
     Dosage: 250 MG, UNK
  12. PROTONIX [Concomitant]
     Active Substance: PANTOPRAZOLE SODIUM

REACTIONS (3)
  - Injury [None]
  - Pain [None]
  - Cerebrovascular accident [None]

NARRATIVE: CASE EVENT DATE: 200904
